FAERS Safety Report 6809620-8 (Version None)
Quarter: 2010Q2

REPORT INFORMATION
  Report Type: 
  Country: None (occurrence: None)
  Receive Date: 20100630
  Receipt Date: 20100618
  Transmission Date: 20101027
  Serious: Yes (Hospitalization, Other)
  Sender: FDA-Public Use
  Company Number: GB-PFIZER INC-2010041549

PATIENT
  Age: 76 Year
  Sex: Male
  Weight: 89.4 kg

DRUGS (7)
  1. SUTENT [Suspect]
     Indication: METASTATIC RENAL CELL CARCINOMA
     Dosage: 25 MG, 1X/DAY
     Route: 048
     Dates: start: 20060727, end: 20100202
  2. ZOLEDRONATE [Suspect]
     Dosage: 4 MG, CYCLIC
     Dates: start: 20090420, end: 20090518
  3. BENDROFLUAZIDE [Concomitant]
     Dosage: 2.5 MG, 1X/DAY
     Route: 048
  4. DEXAMETHASONE [Concomitant]
     Dosage: 1 MG, 1X/DAY
     Route: 048
  5. LEVOTHYROXINE SODIUM [Concomitant]
     Indication: HYPOTHYROIDISM
     Dosage: 25 UG, 1X/DAY
     Route: 048
  6. CODEINE [Concomitant]
     Dosage: UNK
  7. PARACETAMOL [Concomitant]
     Dosage: UNK

REACTIONS (3)
  - DEHYDRATION [None]
  - DIARRHOEA [None]
  - OSTEONECROSIS OF JAW [None]
